FAERS Safety Report 25795624 (Version 1)
Quarter: 2025Q3

REPORT INFORMATION
  Report Type: Spontaneous
  Country: JP (occurrence: JP)
  Receive Date: 20250912
  Receipt Date: 20250912
  Transmission Date: 20251021
  Serious: Yes (Hospitalization)
  Sender: CSL BEHRING
  Company Number: JP-BEH-2025196916

PATIENT
  Age: 72 Year
  Sex: Female
  Weight: 31.6 kg

DRUGS (1)
  1. KORSUVA [Suspect]
     Active Substance: DIFELIKEFALIN ACETATE
     Indication: Pruritus
     Dosage: 17.5 ?G, TIW
     Route: 042
     Dates: start: 20241108, end: 20241127

REACTIONS (2)
  - Hypoglycaemia [Fatal]
  - Hypothermia [Fatal]

NARRATIVE: CASE EVENT DATE: 20241127
